FAERS Safety Report 9370788 (Version 1)
Quarter: 2013Q2

REPORT INFORMATION
  Report Type: Report from Study
  Country: US (occurrence: US)
  Receive Date: 20130626
  Receipt Date: 20130626
  Transmission Date: 20140414
  Serious: Yes (Hospitalization)
  Sender: FDA-Public Use
  Company Number: US-US-EMD SERONO, INC.-7219480

PATIENT
  Age: 49 Year
  Sex: Female

DRUGS (4)
  1. REBIF [Suspect]
     Indication: MULTIPLE SCLEROSIS
     Route: 058
     Dates: start: 20100607
  2. PROTON PUMP INHIBITORS [Concomitant]
     Indication: GASTROOESOPHAGEAL REFLUX DISEASE
  3. CYMBALTA [Concomitant]
     Indication: FIBROMYALGIA
  4. MIRALAX [Concomitant]
     Indication: IRRITABLE BOWEL SYNDROME

REACTIONS (10)
  - Pneumonia [Unknown]
  - Anaemia [Recovered/Resolved]
  - Multiple sclerosis relapse [Recovered/Resolved]
  - Vomiting [Recovering/Resolving]
  - Oesophagitis [Unknown]
  - Cystitis [Unknown]
  - Nausea [Recovering/Resolving]
  - Dehydration [Recovering/Resolving]
  - Fall [Unknown]
  - Influenza like illness [Not Recovered/Not Resolved]
